FAERS Safety Report 6955188-5 (Version None)
Quarter: 2010Q3

REPORT INFORMATION
  Report Type: 
  Country: None (occurrence: None)
  Receive Date: 20100817
  Receipt Date: 20100112
  Transmission Date: 20110219
  Serious: Yes (Life-Threatening, Hospitalization)
  Sender: FDA-Public Use
  Company Number: 20097756

PATIENT
  Sex: Male

DRUGS (1)
  1. LIORESAL [Suspect]
     Indication: MUSCLE SPASTICITY
     Dosage: 216 MCG, DAILY, INTRATHECAL

REACTIONS (5)
  - HEADACHE [None]
  - HYPOTONIA [None]
  - INTRACRANIAL HYPOTENSION [None]
  - MUSCLE SPASMS [None]
  - WITHDRAWAL SYNDROME [None]
